FAERS Safety Report 5619736-X (Version None)
Quarter: 2008Q1

REPORT INFORMATION
  Report Type: 
  Country: None (occurrence: None)
  Receive Date: 20080208
  Receipt Date: 20071217
  Transmission Date: 20080703
  Serious: No
  Sender: FDA-Public Use
  Company Number: A0696320A

PATIENT
  Age: 68 Year
  Sex: Female
  Weight: 79.5 kg

DRUGS (1)
  1. ALTABAX [Suspect]
     Indication: SKIN INFECTION
     Dosage: 1APP SINGLE DOSE
     Route: 061
     Dates: start: 20071101, end: 20071101

REACTIONS (1)
  - RASH [None]
